FAERS Safety Report 9740026 (Version 1)
Quarter: 2013Q4

REPORT INFORMATION
  Report Type: Spontaneous
  Country: IT (occurrence: IT)
  Receive Date: 20131209
  Receipt Date: 20131209
  Transmission Date: 20140711
  Serious: Yes (Hospitalization)
  Sender: FDA-Public Use
  Company Number: IT-SA-2013SA124557

PATIENT
  Age: 65 Year
  Sex: 0

DRUGS (5)
  1. PLAVIX [Suspect]
     Indication: CAROTID ARTERIOSCLEROSIS
     Dosage: STRENGTH: 75 MG
     Route: 048
     Dates: start: 20130115, end: 20130115
  2. OLPREZIDE [Concomitant]
  3. NORVASC [Concomitant]
  4. TAPAZOLE [Concomitant]
  5. BISOPROLOL [Concomitant]

REACTIONS (5)
  - Erythema [Recovered/Resolved with Sequelae]
  - Lip swelling [Recovered/Resolved with Sequelae]
  - Tremor [Recovered/Resolved with Sequelae]
  - Confusional state [Recovered/Resolved with Sequelae]
  - Paraesthesia oral [Recovered/Resolved with Sequelae]
